FAERS Safety Report 7927525-6 (Version None)
Quarter: 2011Q4

REPORT INFORMATION
  Report Type: 
  Country: None (occurrence: None)
  Receive Date: 20111118
  Receipt Date: 20110815
  Transmission Date: 20120403
  Serious: No
  Sender: FDA-Public Use
  Company Number: US-BAYER-2011-076856

PATIENT

DRUGS (2)
  1. IBUPROFEN (ADVIL) [Concomitant]
     Dosage: 3 ADVIL
  2. ALEVE (CAPLET) [Suspect]
     Dosage: 2 ALEVE

REACTIONS (1)
  - HEAD DISCOMFORT [None]
